FAERS Safety Report 6497277-8 (Version None)
Quarter: 2009Q4

REPORT INFORMATION
  Report Type: 
  Country: None (occurrence: None)
  Receive Date: 20091215
  Receipt Date: 20090806
  Transmission Date: 20100525
  Serious: No
  Sender: FDA-Public Use
  Company Number: A0800939A

PATIENT
  Age: 76 Year
  Sex: Male

DRUGS (4)
  1. AVODART [Suspect]
     Indication: BENIGN PROSTATIC HYPERPLASIA
     Dosage: .5MG PER DAY
     Route: 048
     Dates: start: 20080801
  2. ATENOLOL [Concomitant]
  3. ZETIA [Concomitant]
  4. NEXIUM [Concomitant]

REACTIONS (1)
  - MUSCLE SPASMS [None]
